FAERS Safety Report 23880611 (Version 1)
Quarter: 2024Q2

REPORT INFORMATION
  Report Type: Spontaneous
  Country: US (occurrence: US)
  Receive Date: 20240521
  Receipt Date: 20240521
  Transmission Date: 20240716
  Serious: Yes (Hospitalization, Other)
  Sender: FDA-Public Use
  Company Number: US-GLAXOSMITHKLINE-US2024AMR061972

PATIENT

DRUGS (18)
  1. LAMICTAL [Suspect]
     Active Substance: LAMOTRIGINE
     Indication: Depression
     Dosage: UNK
     Dates: start: 20220507
  2. VITAMINS [Concomitant]
     Active Substance: VITAMINS
     Indication: Product used for unknown indication
     Dosage: UNK
     Route: 048
  3. CETIRIZINE [Concomitant]
     Active Substance: CETIRIZINE HYDROCHLORIDE
     Indication: Product used for unknown indication
     Dosage: 10 MG, BID, TAKE 1 TABLET, 60 TABLET
     Route: 048
     Dates: start: 20220106
  4. FAMOTIDINE [Concomitant]
     Active Substance: FAMOTIDINE
     Indication: Product used for unknown indication
     Dosage: 20 MG, BID, TAKE 1 TABLET, 100 TABLET
     Route: 048
     Dates: start: 20220106
  5. FLONASE ALLERGY RELIEF [Concomitant]
     Active Substance: FLUTICASONE PROPIONATE
     Indication: Product used for unknown indication
     Dosage: 2 PUFF(S), IN EACH NOSTRIL, 50 MCG
     Dates: start: 20211124
  6. FLONASE ALLERGY RELIEF [Concomitant]
     Active Substance: FLUTICASONE PROPIONATE
     Dosage: 1 PUFF(S), QD,IN EACH NOSTRIL,  50 MCG
     Dates: start: 20211124
  7. MONTELUKAST [Concomitant]
     Active Substance: MONTELUKAST SODIUM
     Indication: Product used for unknown indication
     Dosage: 1 DF, QD, 10 MG
     Route: 048
     Dates: start: 20210929
  8. FLUOXETINE [Concomitant]
     Active Substance: FLUOXETINE HYDROCHLORIDE
     Indication: Product used for unknown indication
     Dosage: 1 DF, QD, 100 CAPSULE
     Dates: start: 20210902
  9. ACETAMINOPHEN [Concomitant]
     Active Substance: ACETAMINOPHEN
     Indication: Product used for unknown indication
     Dosage: 1000 MG, QD
  10. DIPHENHYDRAMINE [Concomitant]
     Active Substance: DIPHENHYDRAMINE
     Indication: Product used for unknown indication
     Dosage: 50 MG, QD
     Route: 042
  11. ACYCLOVIR [Concomitant]
     Active Substance: ACYCLOVIR
     Indication: Product used for unknown indication
     Dosage: UNK, TID
     Route: 042
  12. BETAMETHASONE DIPROPIONATE [Concomitant]
     Active Substance: BETAMETHASONE DIPROPIONATE
     Indication: Product used for unknown indication
     Dosage: UNK, BID
     Route: 061
  13. CEFTRIAXONE [Concomitant]
     Active Substance: CEFTRIAXONE\CEFTRIAXONE SODIUM
     Indication: Product used for unknown indication
     Dosage: UNK UNK, QD
  14. CHLORHEXIDINE GLUCONATE [Concomitant]
     Active Substance: CHLORHEXIDINE GLUCONATE
     Indication: Product used for unknown indication
     Dosage: UNK, QD, 2%
     Route: 061
  15. CICLESONIDE [Concomitant]
     Active Substance: CICLESONIDE
     Indication: Product used for unknown indication
     Dosage: 160 UG, 1 PUFF
  16. MORPHINE [Concomitant]
     Active Substance: MORPHINE
     Indication: Product used for unknown indication
     Dosage: 2 MG
  17. TOBRADEX [Concomitant]
     Active Substance: DEXAMETHASONE\TOBRAMYCIN
     Indication: Product used for unknown indication
     Dosage: UNK
  18. CYCLOSPORINE [Concomitant]
     Active Substance: CYCLOSPORINE
     Indication: Product used for unknown indication
     Dosage: UNK

REACTIONS (47)
  - Stevens-Johnson syndrome [Unknown]
  - Hypersensitivity [Unknown]
  - Endometriosis [Unknown]
  - Abdominal pain [Unknown]
  - Generalised anxiety disorder [Unknown]
  - Asthma [Unknown]
  - Leukocytosis [Unknown]
  - Haematuria [Unknown]
  - Obesity [Unknown]
  - Learning disorder [Unknown]
  - Reading disorder [Unknown]
  - Hypoaesthesia [Unknown]
  - Pain [Unknown]
  - Carpal tunnel syndrome [Unknown]
  - Skin lesion [Recovering/Resolving]
  - Disturbance in attention [Unknown]
  - Hypersomnia [Unknown]
  - Feeling abnormal [Unknown]
  - Affective disorder [Unknown]
  - Leukocytosis [Unknown]
  - Rash [Not Recovered/Not Resolved]
  - Eye swelling [Recovering/Resolving]
  - Lacrimation increased [Unknown]
  - Eye pain [Unknown]
  - Ocular hyperaemia [Recovering/Resolving]
  - Lip swelling [Recovering/Resolving]
  - Throat irritation [Recovered/Resolved]
  - Headache [Recovered/Resolved]
  - Myalgia [Unknown]
  - Lip blister [Unknown]
  - Eye irritation [Unknown]
  - Vulvovaginal discomfort [Unknown]
  - Rash erythematous [Unknown]
  - Pyrexia [Unknown]
  - Chills [Unknown]
  - Dyspnoea [Unknown]
  - Vomiting [Unknown]
  - Tachycardia [Unknown]
  - Insomnia [Unknown]
  - Swelling face [Unknown]
  - Bacterial vaginosis [Unknown]
  - Pelvic pain [Unknown]
  - Polymenorrhoea [Unknown]
  - Mouth ulceration [Unknown]
  - Rash maculo-papular [Unknown]
  - Ovarian cyst [Unknown]
  - Eye disorder [Unknown]
